FAERS Safety Report 8791099 (Version 1)
Quarter: 2012Q4

REPORT INFORMATION
  Report Type: Spontaneous
  Country: SG (occurrence: None)
  Receive Date: 20120911
  Receipt Date: 20120911
  Transmission Date: 20130627
  Serious: Yes (Other)
  Sender: FDA-Public Use
  Company Number: 2012P1055967

PATIENT
  Age: 3 Year
  Sex: Female

DRUGS (1)
  1. ALBENDAZOLE [Suspect]

REACTIONS (1)
  - Eye swelling [None]
